FAERS Safety Report 8345448-8 (Version None)
Quarter: 2012Q2

REPORT INFORMATION
  Report Type: 
  Country: None (occurrence: None)
  Receive Date: 20120508
  Receipt Date: 20120424
  Transmission Date: 20120825
  Serious: Yes (Other)
  Sender: FDA-Public Use
  Company Number: ES-BAXTER-2012BAX003807

PATIENT
  Sex: Male
  Weight: 80 kg

DRUGS (3)
  1. RITUXIMAB [Suspect]
     Route: 042
     Dates: start: 20091019
  2. CYCLOPHOSPHAMIDE [Suspect]
     Route: 065
  3. FLUDARABINE PHOSPHATE [Suspect]
     Route: 065

REACTIONS (1)
  - ACOUSTIC NEUROMA [None]
